FAERS Safety Report 6847653-6 (Version None)
Quarter: 2010Q3

REPORT INFORMATION
  Report Type: 
  Country: None (occurrence: None)
  Receive Date: 20100716
  Receipt Date: 20100705
  Transmission Date: 20110219
  Serious: Yes (Other)
  Sender: FDA-Public Use
  Company Number: PHHY2010US44246

PATIENT

DRUGS (2)
  1. FEMARA [Suspect]
     Dosage: UNK
  2. FASLODEX [Suspect]
     Dosage: UNK

REACTIONS (2)
  - BREAST CANCER METASTATIC [None]
  - HAEMOLYTIC ANAEMIA [None]
